FAERS Safety Report 10586713 (Version 1)
Quarter: 2014Q4

REPORT INFORMATION
  Report Type: Spontaneous
  Country: US (occurrence: None)
  Receive Date: 20141114
  Receipt Date: 20141114
  Transmission Date: 20150529
  Serious: Yes (Hospitalization)
  Sender: FDA-Public Use
  Company Number: None

PATIENT
  Age: 33 Year
  Sex: Female
  Weight: 56.7 kg

DRUGS (1)
  1. MIRENA [Suspect]
     Active Substance: LEVONORGESTREL
     Indication: CONTRACEPTION
     Dosage: ONE IUD, FOR FIVE YEARS, VAGINAL
     Route: 067
     Dates: start: 20141028, end: 20141112

REACTIONS (2)
  - Pain [None]
  - Device related infection [None]

NARRATIVE: CASE EVENT DATE: 20141112
